FAERS Safety Report 19835621 (Version 1)
Quarter: 2021Q3

REPORT INFORMATION
  Report Type: Spontaneous
  Country: US (occurrence: US)
  Receive Date: 20210915
  Receipt Date: 20210915
  Transmission Date: 20211014
  Serious: Yes (Other)
  Sender: FDA-Public Use
  Company Number: US-TARO-2021TAR00951

PATIENT
  Age: 75 Year
  Sex: Female

DRUGS (2)
  1. WARFARIN [Suspect]
     Active Substance: WARFARIN
     Indication: AORTIC VALVE REPLACEMENT
     Dosage: UNK, DISCONTINUED
     Route: 065
  2. WARFARIN [Suspect]
     Active Substance: WARFARIN
     Dosage: UNK, RESTARTED
     Route: 065

REACTIONS (4)
  - International normalised ratio abnormal [Unknown]
  - Abdominal wall haematoma [Recovered/Resolved]
  - Pelvic haematoma [Unknown]
  - Urinary bladder rupture [Unknown]
